FAERS Safety Report 10680740 (Version 3)
Quarter: 2015Q4

REPORT INFORMATION
  Report Type: Spontaneous
  Country: US (occurrence: US)
  Receive Date: 20141229
  Receipt Date: 20151228
  Transmission Date: 20160304
  Serious: Yes (Hospitalization)
  Sender: FDA-Public Use
  Company Number: US-SANOFI-AVENTIS-2012SA003238

PATIENT
  Age: 68 Year
  Sex: Female

DRUGS (26)
  1. SYNTHROID [Concomitant]
     Active Substance: LEVOTHYROXINE SODIUM
     Route: 048
  2. NAPROXEN. [Concomitant]
     Active Substance: NAPROXEN
     Route: 048
  3. AMLODIPINE BESILATE [Concomitant]
     Active Substance: AMLODIPINE BESYLATE
     Route: 048
  4. INTEGRILIN [Concomitant]
     Active Substance: EPTIFIBATIDE
     Indication: MYOCARDIAL INFARCTION
  5. ZOLOFT [Concomitant]
     Active Substance: SERTRALINE HYDROCHLORIDE
  6. VITAMIN B12 [Concomitant]
     Active Substance: CYANOCOBALAMIN
  7. MELOXICAM. [Concomitant]
     Active Substance: MELOXICAM
     Route: 048
  8. ZOLOFT [Concomitant]
     Active Substance: SERTRALINE HYDROCHLORIDE
  9. VITAMIN D [Concomitant]
     Active Substance: CHOLECALCIFEROL
  10. HYDROCHLOROTHIAZIDE/LISINOPRIL [Concomitant]
     Route: 048
  11. XANAX [Concomitant]
     Active Substance: ALPRAZOLAM
     Dosage: 0.5MG STRENGTH?XR
  12. SEROQUEL [Concomitant]
     Active Substance: QUETIAPINE FUMARATE
     Route: 048
  13. PLAVIX [Suspect]
     Active Substance: CLOPIDOGREL BISULFATE
     Indication: MYOCARDIAL INFARCTION
     Route: 048
  14. EXELON [Concomitant]
     Active Substance: RIVASTIGMINE TARTRATE
     Dosage: PATCH
     Route: 061
  15. TRAZODONE [Concomitant]
     Active Substance: TRAZODONE HYDROCHLORIDE
     Route: 048
  16. METAMUCIL [Concomitant]
     Active Substance: PLANTAGO SEED
     Route: 048
  17. EFFEXOR [Concomitant]
     Active Substance: VENLAFAXINE HYDROCHLORIDE
     Route: 048
  18. ZOLOFT [Concomitant]
     Active Substance: SERTRALINE HYDROCHLORIDE
  19. PENLAC [Concomitant]
     Active Substance: CICLOPIROX
     Dosage: NAIL LACQUER 8% TOPICAL SOLUTION
     Route: 061
  20. METAXALONE. [Concomitant]
     Active Substance: METAXALONE
     Route: 048
  21. LIPITOR [Concomitant]
     Active Substance: ATORVASTATIN CALCIUM
     Route: 048
  22. LISINOPRIL. [Concomitant]
     Active Substance: LISINOPRIL
  23. HYDROCHLOROTHIAZIDE. [Concomitant]
     Active Substance: HYDROCHLOROTHIAZIDE
     Route: 048
  24. ASPIRIN. [Concomitant]
     Active Substance: ASPIRIN
     Indication: MYOCARDIAL INFARCTION
  25. TRAZODONE [Concomitant]
     Active Substance: TRAZODONE HYDROCHLORIDE
     Route: 048
  26. ADVIL [Concomitant]
     Active Substance: IBUPROFEN

REACTIONS (3)
  - Hemiparesis [Unknown]
  - Cerebral haemorrhage [Unknown]
  - Injury [Unknown]

NARRATIVE: CASE EVENT DATE: 201004
